FAERS Safety Report 5130392-X (Version None)
Quarter: 2006Q4

REPORT INFORMATION
  Report Type: 
  Country: None (occurrence: None)
  Receive Date: 20061019
  Receipt Date: 20061011
  Transmission Date: 20070319
  Serious: Yes (Other)
  Sender: FDA-Public Use
  Company Number: FR-BAYER-200610965BFR

PATIENT
  Sex: Male

DRUGS (1)
  1. GLUCOR [Suspect]
     Indication: UNEVALUABLE EVENT
     Route: 048

REACTIONS (2)
  - AZOOSPERMIA [None]
  - TERATOSPERMIA [None]
